FAERS Safety Report 7957366-5 (Version None)
Quarter: 2011Q4

REPORT INFORMATION
  Report Type: 
  Country: None (occurrence: None)
  Receive Date: 20111205
  Receipt Date: 20111125
  Transmission Date: 20120403
  Serious: Yes (Hospitalization)
  Sender: FDA-Public Use
  Company Number: PHHY2011GB103456

PATIENT
  Age: 36 Year
  Sex: Female

DRUGS (5)
  1. PHENYTOIN SODIUM [Suspect]
     Indication: CONVULSION
     Dosage: 1125 MG, UNK
     Route: 042
     Dates: start: 20110116, end: 20110116
  2. LEVETIRACETAM [Concomitant]
     Indication: EPILEPSY
     Dosage: 250 MG, BID
     Route: 048
  3. PREGABALIN [Concomitant]
     Indication: EPILEPSY
     Dosage: 75 MG, BID
     Route: 048
  4. FOLIC ACID [Concomitant]
     Dosage: 5 MG, QD
     Route: 048
  5. DIAZEPAM [Suspect]
     Indication: CONVULSION
     Dosage: 10 MG, UNK
     Route: 040
     Dates: start: 20110116, end: 20110116

REACTIONS (1)
  - THROMBOPHLEBITIS [None]
